FAERS Safety Report 8488369-2 (Version None)
Quarter: 2012Q3

REPORT INFORMATION
  Report Type: 
  Country: None (occurrence: None)
  Receive Date: 20120705
  Receipt Date: 20120625
  Transmission Date: 20120928
  Serious: Yes (Other)
  Sender: FDA-Public Use
  Company Number: JP-ELI_LILLY_AND_COMPANY-JP201206006267

PATIENT
  Age: 60 Year
  Sex: Female

DRUGS (3)
  1. EVISTA [Suspect]
     Indication: OSTEOPOROSIS
     Dosage: 60 MG, QD
     Route: 048
  2. GASMOTIN [Concomitant]
     Indication: CONSTIPATION
     Dosage: UNK
     Route: 048
  3. NEXIUM [Concomitant]
     Indication: GASTRITIS
     Dosage: UNK
     Route: 048

REACTIONS (2)
  - JAUNDICE [None]
  - BILE DUCT STONE [None]
